FAERS Safety Report 19183869 (Version 1)
Quarter: 2021Q2

REPORT INFORMATION
  Report Type: Spontaneous
  Country: US (occurrence: US)
  Receive Date: 20210426
  Receipt Date: 20210426
  Transmission Date: 20210717
  Serious: Yes (Hospitalization)
  Sender: FDA-Public Use
  Company Number: None

PATIENT
  Age: 61 Year
  Sex: Female
  Weight: 104.85 kg

DRUGS (16)
  1. ARIMIDEX [Concomitant]
     Active Substance: ANASTROZOLE
  2. LISINOPRIL. [Concomitant]
     Active Substance: LISINOPRIL
  3. OMEPRAZOLE. [Concomitant]
     Active Substance: OMEPRAZOLE
  4. COLACE [Concomitant]
     Active Substance: DOCUSATE SODIUM
  5. AZOPT [Concomitant]
     Active Substance: BRINZOLAMIDE
  6. TIMOLOL MALEATE. [Concomitant]
     Active Substance: TIMOLOL MALEATE
  7. FENTANYL. [Concomitant]
     Active Substance: FENTANYL
  8. ALPRAZOLAM. [Concomitant]
     Active Substance: ALPRAZOLAM
  9. ASPIRIN 81 [Concomitant]
     Active Substance: ASPIRIN
  10. FISH OIL MAXIMUM STRENGTH [Concomitant]
  11. HUMALOG KWIKPEN [Concomitant]
     Active Substance: INSULIN LISPRO
  12. BLACK COHOSH EXTRACT [Concomitant]
  13. IBRANCE [Suspect]
     Active Substance: PALBOCICLIB
     Indication: BREAST CANCER FEMALE
     Route: 048
     Dates: start: 20200918, end: 20210426
  14. CALCIUM 600+D3 [Concomitant]
     Active Substance: CALCIUM CARBONATE\VITAMIN D
  15. GABAPENTIN. [Concomitant]
     Active Substance: GABAPENTIN
  16. NORCO [Concomitant]
     Active Substance: ACETAMINOPHEN\HYDROCODONE BITARTRATE

REACTIONS (1)
  - Hospitalisation [None]

NARRATIVE: CASE EVENT DATE: 20210426
